FAERS Safety Report 8379182-5 (Version None)
Quarter: 2012Q1

REPORT INFORMATION
  Report Type: 
  Country: None (occurrence: None)
  Receive Date: 20120323
  Receipt Date: 20110505
  Transmission Date: 20120608
  Serious: Yes (Hospitalization)
  Sender: FDA-Public Use
  Company Number: 163-21880-11051003

PATIENT
  Age: 84 Year
  Sex: Female

DRUGS (5)
  1. XANAX [Concomitant]
  2. BENADRYL ALLERGY (BENADRYL ALLERGY) [Concomitant]
  3. RESTORIL [Concomitant]
  4. PROTONIX [Concomitant]
  5. REVLIMID [Suspect]
     Indication: MYELODYSPLASTIC SYNDROME
     Dosage: 10 MG, DAILY, PO
     Route: 048
     Dates: start: 20100812

REACTIONS (1)
  - FATIGUE [None]
